FAERS Safety Report 7682290 (Version 3)
Quarter: 2013Q3

REPORT INFORMATION
  Report Type: Report from Study
  Country: FR (occurrence: FR)
  Receive Date: 20101124
  Receipt Date: 20130717
  Transmission Date: 20140515
  Serious: Yes (Life-Threatening, Hospitalization)
  Sender: FDA-Public Use
  Company Number: FR-AMGEN GMBH-KDC438305

PATIENT
  Age: 19 Year
  Sex: Female
  Weight: 60 kg

DRUGS (10)
  1. ROMIPLOSTIM [Suspect]
     Indication: IMMUNE THROMBOCYTOPENIC PURPURA
     Dosage: 3 MUG/KG, QWK
     Route: 042
     Dates: start: 20100805, end: 20100911
  2. STEDIRIL [Suspect]
     Indication: CONTRACEPTION
     Dosage: 0.5
     Route: 048
     Dates: start: 2008, end: 20100911
  3. PREDNISONE [Suspect]
     Indication: IMMUNE THROMBOCYTOPENIC PURPURA
     Dosage: 60 MG, UNK
     Route: 048
     Dates: start: 20100720, end: 20100803
  4. IMMUNOGLOBULIN [Suspect]
     Indication: IMMUNE THROMBOCYTOPENIC PURPURA
     Dosage: 60 G, UNK
     Route: 048
     Dates: start: 20100721, end: 20100911
  5. RITUXIMAB [Suspect]
     Indication: IMMUNE THROMBOCYTOPENIC PURPURA
     Dosage: 1 G, UNK
     Route: 042
     Dates: start: 20100823, end: 20100906
  6. MEDROL [Suspect]
     Indication: IMMUNE THROMBOCYTOPENIC PURPURA
     Dosage: 16 MG, UNK
     Route: 048
     Dates: start: 20100803, end: 20100929
  7. MABTHERA [Concomitant]
     Dosage: 1 G, UNK
     Route: 014
     Dates: start: 20100825, end: 20100906
  8. CORTICOSTEROID NOS [Concomitant]
     Dosage: UNK UNK, QD
     Dates: start: 20100722
  9. MAGNESIUM [Concomitant]
     Dosage: UNK
     Route: 042
     Dates: start: 20100806, end: 20100817
  10. IG GAMMA [Concomitant]
     Dosage: 60 G, UNK
     Route: 042
     Dates: start: 20100722

REACTIONS (2)
  - Pulmonary embolism [Recovered/Resolved]
  - Thrombocytosis [Recovered/Resolved]
